FAERS Safety Report 14972136 (Version 1)
Quarter: 2018Q2

REPORT INFORMATION
  Report Type: Spontaneous
  Country: US (occurrence: US)
  Receive Date: 20180605
  Receipt Date: 20180605
  Transmission Date: 20180711
  Serious: No
  Sender: FDA-Public Use
  Company Number: US-FOUNDATIONCONSUMERHC-2018-US-002876

PATIENT
  Age: 22 Year
  Sex: Female
  Weight: 79.38 kg

DRUGS (2)
  1. PLAN B ONE-STEP [Suspect]
     Active Substance: LEVONORGESTREL
     Dosage: 1.5 MG X 1 DOSE
     Route: 048
     Dates: start: 2015, end: 2015
  2. PLAN B ONE-STEP [Suspect]
     Active Substance: LEVONORGESTREL
     Dosage: 1 DOSE X 1
     Route: 048
     Dates: start: 20180214, end: 20180214

REACTIONS (4)
  - Dysmenorrhoea [Not Recovered/Not Resolved]
  - Acne [Not Recovered/Not Resolved]
  - Vomiting [Unknown]
  - Nausea [Unknown]

NARRATIVE: CASE EVENT DATE: 2015
